FAERS Safety Report 21789862 (Version 1)
Quarter: 2022Q4

REPORT INFORMATION
  Report Type: Spontaneous
  Country: CN (occurrence: CN)
  Receive Date: 20221228
  Receipt Date: 20221228
  Transmission Date: 20230113
  Serious: Yes (Other)
  Sender: FDA-Public Use
  Company Number: CN-PFIZER INC-PV202200131018

PATIENT
  Age: 6 Year
  Sex: Male
  Weight: 18.4 kg

DRUGS (4)
  1. METHOTREXATE SODIUM [Suspect]
     Active Substance: METHOTREXATE SODIUM
     Indication: Acute lymphocytic leukaemia
     Dosage: 0.48 ML, 1X/DAY
     Route: 037
     Dates: start: 20220911, end: 20220911
  2. CYTARABINE [Suspect]
     Active Substance: CYTARABINE
     Indication: Acute lymphocytic leukaemia
     Dosage: 0.055 G, 1X/DAY
     Dates: start: 20220916, end: 20220920
  3. DEXAMETHASONE [Suspect]
     Active Substance: DEXAMETHASONE
     Indication: Acute lymphocytic leukaemia
     Dosage: 4 ML, 1X/DAY
     Route: 037
     Dates: start: 20220911, end: 20220911
  4. ASPARAGINASE [Suspect]
     Active Substance: ASPARAGINASE
     Indication: Acute lymphocytic leukaemia
     Dosage: 0.74 UNK, ALTERNATE DAY
     Route: 030
     Dates: start: 20220913, end: 20220917

REACTIONS (2)
  - Myocardial necrosis marker increased [Recovering/Resolving]
  - Myocardial injury [Unknown]

NARRATIVE: CASE EVENT DATE: 20220917
